FAERS Safety Report 5683560-2 (Version None)
Quarter: 2008Q1

REPORT INFORMATION
  Report Type: 
  Country: None (occurrence: None)
  Receive Date: 20080326
  Receipt Date: 20070605
  Transmission Date: 20080703
  Serious: Yes (Death)
  Sender: FDA-Public Use
  Company Number: 6034267

PATIENT
  Age: 75 Year
  Sex: Female

DRUGS (2)
  1. GLUCOPHAGE [Suspect]
     Indication: DIABETES MELLITUS
     Dosage: 2000 MG ORAL
     Route: 048
     Dates: start: 19920101
  2. LEVOTHYROXINE SODIUM [Concomitant]

REACTIONS (3)
  - LACTIC ACIDOSIS [None]
  - MULTI-ORGAN FAILURE [None]
  - SHOCK [None]
